FAERS Safety Report 9226854 (Version 1)
Quarter: 2013Q2

REPORT INFORMATION
  Report Type: Spontaneous
  Country: US (occurrence: None)
  Receive Date: 20130410
  Receipt Date: 20130410
  Transmission Date: 20140414
  Serious: Yes (Hospitalization)
  Sender: FDA-Public Use
  Company Number: None

PATIENT
  Age: 85 Year
  Sex: Male
  Weight: 69.5 kg

DRUGS (8)
  1. LOVENOX [Suspect]
     Dosage: RECENT
     Route: 058
  2. DIGOXIN [Suspect]
     Indication: CARDIAC FAILURE CONGESTIVE
     Dosage: RECENT
     Route: 048
  3. CARDURA [Concomitant]
  4. PROSCAR [Concomitant]
  5. DILTIAZEM [Concomitant]
  6. DOXASIN [Concomitant]
  7. ENALAPRIL [Concomitant]
  8. LANOXIN [Concomitant]

REACTIONS (8)
  - Haematuria [None]
  - Anaemia [None]
  - Haemorrhage [None]
  - Sepsis [None]
  - Urinary retention [None]
  - Ventricular tachycardia [None]
  - Renal failure [None]
  - Electrocardiogram abnormal [None]
